FAERS Safety Report 5663533-6 (Version None)
Quarter: 2008Q1

REPORT INFORMATION
  Report Type: 
  Country: None (occurrence: None)
  Receive Date: 20080310
  Receipt Date: 20080226
  Transmission Date: 20080703
  Serious: Yes (Life-Threatening, Hospitalization)
  Sender: FDA-Public Use
  Company Number: 2008S1003148

PATIENT
  Age: 66 Year
  Sex: Female

DRUGS (9)
  1. ENALAPRIL MALEATE [Suspect]
     Indication: HYPERTENSION
     Dosage: 2.5 MG;, 2.5 MG;, 5 MG;
     Dates: start: 20061110, end: 20061212
  2. ENALAPRIL MALEATE [Suspect]
     Indication: HYPERTENSION
     Dosage: 2.5 MG;, 2.5 MG;, 5 MG;
     Dates: start: 20061013
  3. ENALAPRIL MALEATE [Suspect]
     Indication: HYPERTENSION
     Dosage: 2.5 MG;, 2.5 MG;, 5 MG;
     Dates: start: 20061013
  4. BECLOMETHASONE DIPROPIONATE [Concomitant]
  5. BENDROFLUMETHIAZIDE (BENDROFLUMETHIAZIDE) [Concomitant]
  6. DIAZEPAM [Concomitant]
  7. FELODIPINE [Concomitant]
  8. LEVOTHYROXINE SODIUM [Concomitant]
  9. SIMVASTATIN [Concomitant]

REACTIONS (1)
  - MANIA [None]
